FAERS Safety Report 5268111-9 (Version None)
Quarter: 2007Q1

REPORT INFORMATION
  Report Type: 
  Country: None (occurrence: None)
  Receive Date: 20070319
  Receipt Date: 20070306
  Transmission Date: 20070707
  Serious: Yes (Hospitalization, Other)
  Sender: FDA-Public Use
  Company Number: PHBS2007BE04458

PATIENT
  Sex: Male

DRUGS (5)
  1. LIPITOR [Concomitant]
  2. ASAFLOW [Concomitant]
  3. HYPAN [Concomitant]
  4. DIOVAN [Suspect]
     Indication: HYPERTENSION
     Dosage: 80 MG, QD
     Route: 048
     Dates: start: 20050101, end: 20061001
  5. DIOVAN [Suspect]
     Dosage: 160 MG, QD
     Route: 048
     Dates: start: 20061001, end: 20070201

REACTIONS (2)
  - BLOOD CREATININE INCREASED [None]
  - CORONARY ARTERY BYPASS [None]
